FAERS Safety Report 17823565 (Version 2)
Quarter: 2020Q2

REPORT INFORMATION
  Report Type: Spontaneous
  Country: US (occurrence: US)
  Receive Date: 20200526
  Receipt Date: 20200529
  Transmission Date: 20200714
  Serious: Yes (Other)
  Sender: FDA-Public Use
  Company Number: US-PFIZER INC-2020204635

PATIENT
  Sex: Male

DRUGS (5)
  1. XANAX [Suspect]
     Active Substance: ALPRAZOLAM
     Dosage: UNK
  2. OXYCODONE [Concomitant]
     Active Substance: OXYCODONE
  3. DILAUDID [Concomitant]
     Active Substance: HYDROMORPHONE HYDROCHLORIDE
  4. HYDROCODONE [Concomitant]
     Active Substance: HYDROCODONE
  5. OXYCONTIN [Concomitant]
     Active Substance: OXYCODONE HYDROCHLORIDE

REACTIONS (3)
  - Pain [Unknown]
  - Hypoacusis [Unknown]
  - Drug dependence [Unknown]
